FAERS Safety Report 7299803-8 (Version None)
Quarter: 2011Q1

REPORT INFORMATION
  Report Type: 
  Country: None (occurrence: None)
  Receive Date: 20110217
  Receipt Date: 20110208
  Transmission Date: 20110831
  Serious: Yes (Hospitalization)
  Sender: FDA-Public Use
  Company Number: SE-ASTRAZENECA-2011SE07303

PATIENT
  Age: 86 Year
  Sex: Female

DRUGS (6)
  1. LEVOTHYROXINE SODIUM [Concomitant]
     Route: 048
  2. TROMBYL [Concomitant]
     Route: 048
  3. LASIX [Concomitant]
     Route: 048
  4. ALLOPURINOL [Concomitant]
  5. ATACAND [Suspect]
     Indication: CARDIAC FAILURE
     Route: 048
     Dates: end: 20101101
  6. KALCIPOS-D [Concomitant]
     Route: 048

REACTIONS (1)
  - HYPOTENSION [None]
